FAERS Safety Report 6736951-2 (Version None)
Quarter: 2010Q2

REPORT INFORMATION
  Report Type: 
  Country: None (occurrence: None)
  Receive Date: 20100522
  Receipt Date: 20100514
  Transmission Date: 20101027
  Serious: Yes (Hospitalization)
  Sender: FDA-Public Use
  Company Number: US-JNJFOC-20100507094

PATIENT
  Age: 3 Year
  Sex: Female

DRUGS (2)
  1. CHILDREN'S TYLENOL LIQUID CHERRY BLAST [Suspect]
     Indication: NASOPHARYNGITIS
     Route: 048
  2. CHILDREN'S TYLENOL LIQUID CHERRY BLAST [Suspect]
     Indication: OROPHARYNGEAL PAIN
     Route: 048

REACTIONS (2)
  - PRODUCT QUALITY ISSUE [None]
  - ROTAVIRUS INFECTION [None]
